FAERS Safety Report 9256886 (Version 1)
Quarter: 2013Q2

REPORT INFORMATION
  Report Type: Spontaneous
  Country: US (occurrence: None)
  Receive Date: 20130423
  Receipt Date: 20130423
  Transmission Date: 20140414
  Serious: Yes (Hospitalization)
  Sender: FDA-Public Use
  Company Number: None

PATIENT
  Age: 59 Year
  Sex: Female
  Weight: 108.86 kg

DRUGS (2)
  1. PAROXETINE [Suspect]
     Indication: HOT FLUSH
     Route: 048
     Dates: start: 20130419, end: 20130419
  2. PAROXETINE [Suspect]
     Indication: IRRITABILITY
     Route: 048
     Dates: start: 20130419, end: 20130419

REACTIONS (5)
  - Urticaria [None]
  - Local swelling [None]
  - Dyspnoea [None]
  - Swelling face [None]
  - Local swelling [None]
